FAERS Safety Report 9748815 (Version 1)
Quarter: 2013Q4

REPORT INFORMATION
  Report Type: Spontaneous
  Country: US (occurrence: US)
  Receive Date: 20131212
  Receipt Date: 20131212
  Transmission Date: 20140711
  Serious: No
  Sender: FDA-Public Use
  Company Number: US-INCYTE CORPORATION-2013IN001922

PATIENT
  Age: 83 Year
  Sex: Male

DRUGS (6)
  1. JAKAFI [Suspect]
     Indication: MYELOFIBROSIS
     Dosage: 5 MG, BID
     Route: 048
     Dates: start: 20130708
  2. ASPIRIN [Concomitant]
     Dosage: 81 MG, UNK
  3. SIMVASTATIN [Concomitant]
  4. METOPROLOL [Concomitant]
  5. PAROXETINE [Concomitant]
  6. VITAMIN B 12 [Concomitant]

REACTIONS (2)
  - Fatigue [Unknown]
  - Platelet count decreased [Unknown]
